FAERS Safety Report 7773133-X (Version None)
Quarter: 2011Q3

REPORT INFORMATION
  Report Type: 
  Country: None (occurrence: None)
  Receive Date: 20110922
  Receipt Date: 20100803
  Transmission Date: 20111222
  Serious: No
  Sender: FDA-Public Use
  Company Number: US-ASTRAZENECA-2007UW09791

PATIENT
  Age: 30 Year
  Sex: Male
  Weight: 90.7 kg

DRUGS (17)
  1. BENZTROPINE MESYLATE [Concomitant]
     Dosage: 0.5-1.0 MG
     Route: 048
  2. METFORMIN [Concomitant]
     Route: 048
  3. LISINOPRIL [Concomitant]
     Route: 048
  4. OMEPRAZOLE [Concomitant]
     Route: 048
  5. PROPOXYPHENE HYDROCHLORIDE [Concomitant]
     Route: 048
  6. CLONAZEPAM [Concomitant]
     Route: 048
  7. ZOLPIDEM [Concomitant]
     Dosage: 5-10 MG
     Route: 048
  8. CHANTIX [Concomitant]
     Route: 048
  9. SEROQUEL [Suspect]
     Indication: SCHIZOPHRENIA
     Route: 048
     Dates: start: 20060501, end: 20071201
  10. SEROQUEL [Suspect]
     Route: 048
     Dates: start: 20060616
  11. SERTRALINE HYDROCHLORIDE [Concomitant]
     Dosage: 50-100 MG
     Route: 048
  12. DIPHENOXYLATE [Concomitant]
     Route: 048
  13. ABILIFY [Concomitant]
     Dosage: 20-30 MG
     Route: 065
     Dates: start: 20060101, end: 20070101
  14. RISPERDAL [Concomitant]
     Indication: SCHIZOPHRENIA
     Dosage: 2-4 MG
     Route: 048
     Dates: start: 20060101, end: 20070101
  15. WELLBUTRIN [Concomitant]
     Route: 048
  16. METRONIDAZOLE [Concomitant]
     Route: 048
  17. NIASPAN [Concomitant]
     Route: 048

REACTIONS (4)
  - INSOMNIA [None]
  - TYPE 2 DIABETES MELLITUS [None]
  - DIABETIC COMPLICATION [None]
  - OBESITY [None]
